FAERS Safety Report 9687354 (Version 1)
Quarter: 2013Q4

REPORT INFORMATION
  Report Type: Spontaneous
  Country: US (occurrence: US)
  Receive Date: 20131114
  Receipt Date: 20131114
  Transmission Date: 20140711
  Serious: No
  Sender: FDA-Public Use
  Company Number: US-BIOGENIDEC-2013BI106578

PATIENT
  Age: 24 Year
  Sex: Female
  Weight: 54 kg

DRUGS (13)
  1. TYSABRI [Suspect]
     Indication: MULTIPLE SCLEROSIS
     Route: 042
  2. ACETAMINOPHEN [Concomitant]
  3. VITAMIN D [Concomitant]
     Route: 048
  4. PRENATAL VITAMIN [Concomitant]
     Route: 048
  5. SERTRALINE [Concomitant]
     Route: 048
  6. NAPROXEN SODIUM [Concomitant]
     Route: 048
  7. OMEPRAZOLE [Concomitant]
     Route: 048
  8. CALCIUM CARBONATE [Concomitant]
     Route: 048
  9. GABAPENTIN [Concomitant]
     Route: 048
  10. NUVARING [Concomitant]
     Route: 067
  11. MULTI VITAMIN [Concomitant]
  12. MINOCYCLINE [Concomitant]
  13. BENADRYL [Concomitant]
     Route: 042

REACTIONS (11)
  - Confusional state [Unknown]
  - Poor quality sleep [Unknown]
  - Stress [Unknown]
  - Communication disorder [Unknown]
  - Depression [Unknown]
  - Muscle tightness [Unknown]
  - Drug hypersensitivity [Unknown]
  - Balance disorder [Unknown]
  - Dizziness [Unknown]
  - Headache [Unknown]
  - Fatigue [Unknown]
